FAERS Safety Report 10253777 (Version 1)
Quarter: 2014Q2

REPORT INFORMATION
  Report Type: Spontaneous
  Country: FR (occurrence: FR)
  Receive Date: 20140623
  Receipt Date: 20140623
  Transmission Date: 20141212
  Serious: Yes (Death, Hospitalization, Other)
  Sender: FDA-Public Use
  Company Number: FR-ASTRAZENECA-2014SE45627

PATIENT
  Age: 30150 Day
  Sex: Male

DRUGS (18)
  1. INEXIUM [Suspect]
     Route: 048
  2. INSTANYL [Suspect]
     Route: 045
  3. INSTANYL [Suspect]
     Dosage: MATRIFEN, ONE DOSAGE FORM DAILY
     Route: 062
  4. PARACETAMOL [Suspect]
     Route: 048
  5. TERBUTALINE [Suspect]
     Dosage: THREE INHALATIONS DAILY
     Route: 055
  6. GAPAPENTINE ARROW [Suspect]
     Route: 048
     Dates: start: 20140420, end: 20140425
  7. PLAVIX [Suspect]
     Route: 048
     Dates: end: 20140429
  8. AMLODIPINE [Suspect]
     Route: 048
  9. MODOPAR [Suspect]
     Route: 048
  10. TAHOR [Suspect]
     Route: 048
  11. CALCIDIA [Suspect]
     Route: 048
  12. TEMERIT [Suspect]
     Route: 048
  13. TRANSIPEG [Suspect]
     Route: 048
  14. FLIXOTIDE DISKUS [Suspect]
     Dosage: TWO INHALATIONS PER DAY
     Route: 055
  15. SPIRIVA [Suspect]
     Dosage: ONE INHALATION PER DAY
     Route: 055
  16. TOBRADEX [Suspect]
     Dosage: FOUR DROP PER DAY
     Route: 047
  17. STILNOX [Concomitant]
  18. DIETARY SUPPLEMENT [Concomitant]

REACTIONS (9)
  - Thrombocytopenia [Fatal]
  - Haemodynamic instability [Fatal]
  - Pulmonary oedema [Fatal]
  - Dehydration [Fatal]
  - Hypovolaemic shock [Unknown]
  - Catheter site haemorrhage [Unknown]
  - Cachexia [Unknown]
  - Dialysis [None]
  - Dehydration [None]
